FAERS Safety Report 16988841 (Version 1)
Quarter: 2019Q4

REPORT INFORMATION
  Report Type: Spontaneous
  Country: GB (occurrence: GB)
  Receive Date: 20191104
  Receipt Date: 20191104
  Transmission Date: 20200122
  Serious: Yes (Other)
  Sender: FDA-Public Use
  Company Number: GB-SA-2019SA295162

PATIENT
  Age: 32 Year
  Sex: Female
  Weight: 67.58 kg

DRUGS (4)
  1. OCTASA [Concomitant]
     Active Substance: MESALAMINE
     Dates: start: 20140101
  2. CLOMIFENE CITRATE [Suspect]
     Active Substance: CLOMIPHENE
     Indication: OVULATION INDUCTION
     Dosage: 50 MG
     Route: 048
     Dates: start: 20190817, end: 20190821
  3. AZATHIOPRINE. [Concomitant]
     Active Substance: AZATHIOPRINE
     Indication: CROHN^S DISEASE
     Dates: start: 20170101
  4. FOLIC ACID. [Concomitant]
     Active Substance: FOLIC ACID

REACTIONS (6)
  - Depression [Recovering/Resolving]
  - Suicidal ideation [Recovering/Resolving]
  - Tearfulness [Recovering/Resolving]
  - Mood altered [Recovering/Resolving]
  - Insomnia [Recovering/Resolving]
  - Suicidal behaviour [Recovering/Resolving]

NARRATIVE: CASE EVENT DATE: 20190825
